FAERS Safety Report 16834821 (Version 5)
Quarter: 2020Q1

REPORT INFORMATION
  Report Type: Report from Study
  Country: US (occurrence: US)
  Receive Date: 20190920
  Receipt Date: 20200103
  Transmission Date: 20200409
  Serious: Yes (Death, Hospitalization)
  Sender: FDA-Public Use
  Company Number: US-ACTELION-A-US2019-194169

PATIENT
  Age: 57 Year
  Sex: Male
  Weight: 77.1 kg

DRUGS (2)
  1. TADALAFIL. [Concomitant]
     Active Substance: TADALAFIL
  2. VELETRI [Suspect]
     Active Substance: EPOPROSTENOL
     Indication: PULMONARY HYPERTENSION
     Dosage: 14 NG/KG, PER MIN
     Route: 042

REACTIONS (6)
  - Liver ablation [Unknown]
  - Hepatic encephalopathy [Unknown]
  - Ascites [Unknown]
  - Hepatic cancer [Unknown]
  - Death [Fatal]
  - Abdominal cavity drainage [Unknown]

NARRATIVE: CASE EVENT DATE: 20191219
